FAERS Safety Report 10369159 (Version 1)
Quarter: 2014Q3

REPORT INFORMATION
  Report Type: Report from Study
  Country: DE (occurrence: DE)
  Receive Date: 20140807
  Receipt Date: 20140807
  Transmission Date: 20150326
  Serious: Yes (Other)
  Sender: FDA-Public Use
  Company Number: DE-ABBVIE-14K-062-1268487-00

PATIENT
  Age: 40 Year
  Sex: Male
  Weight: 78 kg

DRUGS (9)
  1. HUMIRA [Suspect]
     Active Substance: ADALIMUMAB
     Route: 058
     Dates: start: 201306, end: 201311
  2. PREDNISOLONE. [Concomitant]
     Active Substance: PREDNISOLONE
     Dates: start: 2013, end: 2013
  3. PREDNISOLONE. [Concomitant]
     Active Substance: PREDNISOLONE
     Dates: start: 2013, end: 2014
  4. CIPRALEX [Concomitant]
     Active Substance: ESCITALOPRAM OXALATE
     Indication: PRODUCT USED FOR UNKNOWN INDICATION
  5. HUMIRA [Suspect]
     Active Substance: ADALIMUMAB
     Route: 058
     Dates: start: 201312
  6. PREDNISOLONE. [Concomitant]
     Active Substance: PREDNISOLONE
     Dates: start: 2014
  7. HUMIRA [Suspect]
     Active Substance: ADALIMUMAB
     Indication: CROHN^S DISEASE
     Dosage: INITIAL DOSE
     Route: 058
     Dates: start: 20130611, end: 20130611
  8. HUMIRA [Suspect]
     Active Substance: ADALIMUMAB
     Dosage: WEEK 2
     Route: 058
     Dates: start: 201306, end: 201306
  9. PREDNISOLONE. [Concomitant]
     Active Substance: PREDNISOLONE
     Indication: PRODUCT USED FOR UNKNOWN INDICATION
     Dates: end: 2013

REACTIONS (2)
  - Anal fistula [Unknown]
  - Abscess [Unknown]

NARRATIVE: CASE EVENT DATE: 2013
